FAERS Safety Report 7659189-3 (Version None)
Quarter: 2011Q3

REPORT INFORMATION
  Report Type: 
  Country: None (occurrence: None)
  Receive Date: 20110805
  Receipt Date: 20110725
  Transmission Date: 20111222
  Serious: Yes (Disabling)
  Sender: FDA-Public Use
  Company Number: DE-GLAXOSMITHKLINE-D0072178A

PATIENT
  Sex: Male
  Weight: 14 kg

DRUGS (2)
  1. ALBUTEROL [Concomitant]
     Indication: ASTHMA
     Route: 055
     Dates: start: 20090401
  2. FLUTIDE MITE [Suspect]
     Indication: ASTHMA
     Route: 055
     Dates: start: 20090402

REACTIONS (1)
  - DENTAL CARIES [None]
